FAERS Safety Report 19657883 (Version 3)
Quarter: 2021Q3

REPORT INFORMATION
  Report Type: Spontaneous
  Country: JP (occurrence: JP)
  Receive Date: 20210804
  Receipt Date: 20210916
  Transmission Date: 20211014
  Serious: Yes (Disabling, Other)
  Sender: FDA-Public Use
  Company Number: JP-TAKEDA-2021TUS048596

PATIENT
  Age: 77 Year
  Sex: Male
  Weight: 68.7 kg

DRUGS (6)
  1. FEBURIC [Suspect]
     Active Substance: FEBUXOSTAT
     Indication: HYPERURICAEMIA
     Dosage: UNK
     Route: 048
     Dates: start: 201910, end: 201912
  2. AMLODIPINE [Concomitant]
     Active Substance: AMLODIPINE BESYLATE
     Indication: HYPERTENSION
     Dosage: 2.5 MILLIGRAM, QD
     Route: 048
     Dates: start: 20201210, end: 20210115
  3. ATELEC [Concomitant]
     Active Substance: CILNIDIPINE
     Dosage: 2.5 MILLIGRAM, QD
     Route: 048
     Dates: start: 20210217, end: 20210602
  4. FEBURIC [Suspect]
     Active Substance: FEBUXOSTAT
     Dosage: 10 MILLIGRAM, QD
     Route: 048
     Dates: start: 20201011, end: 20210428
  5. FEBURIC [Suspect]
     Active Substance: FEBUXOSTAT
     Dosage: 5 MILLIGRAM, QD
     Route: 048
     Dates: start: 20210429, end: 20210726
  6. ATELEC [Concomitant]
     Active Substance: CILNIDIPINE
     Indication: HYPERTENSION
     Dosage: 5 MILLIGRAM, QD
     Route: 048
     Dates: start: 20210116, end: 20210216

REACTIONS (5)
  - Dysuria [Unknown]
  - Hydroureter [Unknown]
  - Hydronephrosis [Unknown]
  - Urinary retention [Unknown]
  - Neurogenic bladder [Unknown]

NARRATIVE: CASE EVENT DATE: 20210414
